FAERS Safety Report 23689547 (Version 1)
Quarter: 2024Q1

REPORT INFORMATION
  Report Type: Spontaneous
  Country: US (occurrence: US)
  Receive Date: 20240331
  Receipt Date: 20240331
  Transmission Date: 20240410
  Serious: No
  Sender: FDA-Public Use
  Company Number: US-TEVA-VS-3159657

PATIENT
  Sex: Female

DRUGS (2)
  1. AJOVY [Suspect]
     Active Substance: FREMANEZUMAB-VFRM
     Indication: Migraine
     Route: 065
  2. AJOVY [Suspect]
     Active Substance: FREMANEZUMAB-VFRM
     Dosage: 4TH DOSE
     Route: 065
     Dates: start: 20240129

REACTIONS (11)
  - Device defective [Unknown]
  - Drug hypersensitivity [Unknown]
  - Urticaria [Not Recovered/Not Resolved]
  - Injection site swelling [Unknown]
  - Fatigue [Unknown]
  - Hypersensitivity [Unknown]
  - Injection site reaction [Unknown]
  - Therapeutic product effect delayed [Unknown]
  - Injection site erythema [Unknown]
  - Injection site pain [Unknown]
  - Wrong technique in device usage process [Unknown]

NARRATIVE: CASE EVENT DATE: 20240129
